FAERS Safety Report 5491366-2 (Version None)
Quarter: 2007Q4

REPORT INFORMATION
  Report Type: 
  Country: None (occurrence: None)
  Receive Date: 20071017
  Receipt Date: 20071005
  Transmission Date: 20080405
  Serious: Yes (Other)
  Sender: FDA-Public Use
  Company Number: 6038576

PATIENT
  Age: 33 Year
  Sex: Female

DRUGS (2)
  1. CONCOR                 (BISOPROLOL FUMARATE) [Suspect]
     Indication: HYPERTENSION
     Dosage: 5 MG (2,5 MG, 2 IN 1 D) ORAL
     Route: 048
     Dates: start: 20061219, end: 20070912
  2. CONTROLOC              (PANTOPRAZOLE) [Concomitant]

REACTIONS (2)
  - DYSPNOEA [None]
  - TONGUE OEDEMA [None]
